FAERS Safety Report 11934444 (Version 1)
Quarter: 2016Q1

REPORT INFORMATION
  Report Type: Spontaneous
  Country: US (occurrence: None)
  Receive Date: 20160120
  Receipt Date: 20160120
  Transmission Date: 20160526
  Serious: Yes (Hospitalization)
  Sender: FDA-Public Use
  Company Number: None

PATIENT
  Age: 55 Year
  Sex: Male

DRUGS (1)
  1. HARVONI [Suspect]
     Active Substance: LEDIPASVIR\SOFOSBUVIR
     Indication: HEPATITIS C
     Dosage: 1 TABLET, DAILY, BY MOUTH
     Dates: start: 20151001

REACTIONS (3)
  - Drug dose omission [None]
  - Malaise [None]
  - Blood pressure increased [None]

NARRATIVE: CASE EVENT DATE: 20151208
